FAERS Safety Report 9411464 (Version 1)
Quarter: 2013Q3

REPORT INFORMATION
  Report Type: Spontaneous
  Country: US (occurrence: US)
  Receive Date: 20130722
  Receipt Date: 20130722
  Transmission Date: 20140515
  Serious: No
  Sender: FDA-Public Use
  Company Number: US-009507513-1307USA008885

PATIENT
  Sex: 0

DRUGS (1)
  1. JANUMET XR [Suspect]
     Dosage: 50/1000 TABLET, 2 TABLETS EVERY NIGHT AT BEDTIME
     Route: 048
     Dates: start: 20130529

REACTIONS (3)
  - Drug prescribing error [Unknown]
  - Product quality issue [Unknown]
  - No adverse event [Unknown]
